FAERS Safety Report 9920849 (Version 5)
Quarter: 2016Q1

REPORT INFORMATION
  Report Type: Report from Study
  Country: CA (occurrence: CA)
  Receive Date: 20140225
  Receipt Date: 20160328
  Transmission Date: 20160526
  Serious: Yes (Other)
  Sender: FDA-Public Use
  Company Number: CA-ROCHE-1350461

PATIENT
  Age: 41 Year
  Sex: Female
  Weight: 142.9 kg

DRUGS (12)
  1. ACETAMINOPHEN. [Concomitant]
     Active Substance: ACETAMINOPHEN
     Indication: PREMEDICATION
     Route: 048
     Dates: start: 20130523
  2. PREDNISONE. [Concomitant]
     Active Substance: PREDNISONE
     Indication: PREMEDICATION
     Dosage: THE NIGHT BEFORE
     Route: 048
     Dates: start: 20130523
  3. DIPHENHYDRAMINE. [Concomitant]
     Active Substance: DIPHENHYDRAMINE
     Indication: PREMEDICATION
     Route: 048
     Dates: start: 20130523
  4. RITUXAN [Suspect]
     Active Substance: RITUXIMAB
     Indication: RHEUMATOID ARTHRITIS
     Dosage: LAST DOSE ADMINISTERED ON: 20/NOV/2014.
     Route: 042
     Dates: start: 20130523
  5. FOLIC ACID. [Concomitant]
     Active Substance: FOLIC ACID
  6. ATACAND [Concomitant]
     Active Substance: CANDESARTAN CILEXETIL
  7. LOSEC [Concomitant]
     Active Substance: OMEPRAZOLE
  8. NAPROXEN. [Concomitant]
     Active Substance: NAPROXEN
     Route: 065
  9. SYNTHROID [Concomitant]
     Active Substance: LEVOTHYROXINE SODIUM
  10. METHOTREXATE [Concomitant]
     Active Substance: METHOTREXATE
  11. ZOLOFT [Concomitant]
     Active Substance: SERTRALINE HYDROCHLORIDE
  12. SULFASALAZINE. [Concomitant]
     Active Substance: SULFASALAZINE

REACTIONS (4)
  - Dyspnoea [Unknown]
  - Bronchitis [Recovering/Resolving]
  - Pneumonia [Unknown]
  - Haemoptysis [Unknown]

NARRATIVE: CASE EVENT DATE: 20140203
